FAERS Safety Report 8542863-4 (Version None)
Quarter: 2012Q3

REPORT INFORMATION
  Report Type: 
  Country: None (occurrence: None)
  Receive Date: 20120727
  Receipt Date: 20120717
  Transmission Date: 20120928
  Serious: Yes (Other)
  Sender: FDA-Public Use
  Company Number: BR-AMGEN-BRASP2012045672

PATIENT
  Age: 42 Year
  Sex: Male
  Weight: 110 kg

DRUGS (6)
  1. ENBREL [Suspect]
     Indication: PSORIASIS
     Dosage: 50 MG, ONCE WEEKLY
     Route: 058
     Dates: start: 20080601, end: 20120101
  2. SIMVASTATIN [Concomitant]
     Dosage: UNK
  3. METFORMIN HYDROCHLORIDE [Concomitant]
     Dosage: UNK
  4. TIGASON                            /00530101/ [Concomitant]
     Dosage: UNK
  5. APIDRA [Concomitant]
     Dosage: UNK
  6. DIAMICRON [Concomitant]
     Dosage: UNK

REACTIONS (3)
  - DIABETES MELLITUS [None]
  - SKIN LESION [None]
  - DRUG INEFFECTIVE [None]
